FAERS Safety Report 9790905 (Version 2)
Quarter: 2014Q3

REPORT INFORMATION
  Report Type: Spontaneous
  Country: US (occurrence: US)
  Receive Date: 20131231
  Receipt Date: 20140818
  Transmission Date: 20150326
  Serious: Yes (Hospitalization, Other)
  Sender: FDA-Public Use
  Company Number: US-009507513-1312USA012720

PATIENT
  Sex: Female

DRUGS (1)
  1. NUVARING [Suspect]
     Active Substance: ETHINYL ESTRADIOL\ETONOGESTREL
     Indication: CONTRACEPTION
     Dosage: UNK, INSERT 1 RING VAGINALLY FOR 3 WEEKS, THEN REMOVE FOR 1 WEEK
     Route: 067
     Dates: start: 20120417, end: 20120602

REACTIONS (8)
  - Pulmonary mass [Unknown]
  - Amenorrhoea [Unknown]
  - Depression [Unknown]
  - Lymphadenopathy [Unknown]
  - Pulmonary embolism [Unknown]
  - Pleural effusion [Unknown]
  - Migraine [Unknown]
  - Iron deficiency anaemia [Unknown]

NARRATIVE: CASE EVENT DATE: 20120526
